FAERS Safety Report 13778660 (Version 1)
Quarter: 2017Q3

REPORT INFORMATION
  Report Type: Spontaneous
  Country: GB (occurrence: GB)
  Receive Date: 20170721
  Receipt Date: 20170721
  Transmission Date: 20171127
  Serious: Yes (Hospitalization)
  Sender: FDA-Public Use
  Company Number: GB-CONCORDIA PHARMACEUTICALS INC.-GSH201707-004000

PATIENT
  Age: 46 Year
  Sex: Female
  Weight: 83.46 kg

DRUGS (1)
  1. PREDNISOLONE. [Suspect]
     Active Substance: PREDNISOLONE
     Indication: DYSPNOEA
     Route: 048
     Dates: start: 20170608

REACTIONS (3)
  - Aggression [Not Recovered/Not Resolved]
  - Suicide attempt [Not Recovered/Not Resolved]
  - Anxiety [Not Recovered/Not Resolved]

NARRATIVE: CASE EVENT DATE: 20170611
